FAERS Safety Report 6212112-0 (Version None)
Quarter: 2009Q2

REPORT INFORMATION
  Report Type: 
  Country: None (occurrence: None)
  Receive Date: 20090602
  Receipt Date: 20090522
  Transmission Date: 20091009
  Serious: Yes (Hospitalization)
  Sender: FDA-Public Use
  Company Number: PHHY2009JP13580

PATIENT
  Sex: Male
  Weight: 72 kg

DRUGS (9)
  1. ICL670A ICL+DISTAB [Suspect]
     Indication: MYELOFIBROSIS
     Dosage: 1375 MG, QD
     Route: 048
     Dates: start: 20080904, end: 20090205
  2. ICL670A ICL+DISTAB [Suspect]
     Indication: IRON OVERLOAD
     Dosage: 1000 MG, QD
     Route: 048
     Dates: start: 20090206, end: 20090304
  3. DESFERAL [Concomitant]
     Dosage: 1000 MG, UNK
     Route: 030
     Dates: start: 20071220, end: 20080821
  4. AMARYL [Concomitant]
     Indication: DIABETES MELLITUS
     Dosage: 0.5 MG, UNK
     Route: 048
     Dates: start: 20080904, end: 20090303
  5. PREDNISOLONE [Concomitant]
     Indication: MYELOFIBROSIS
     Dosage: 10 MG, UNK
     Route: 048
     Dates: start: 20080904, end: 20090303
  6. FOSAMAX [Concomitant]
     Indication: DIABETES MELLITUS
     Dosage: 35 MG, UNK
     Route: 048
     Dates: start: 20080904, end: 20090303
  7. METFORMIN HCL [Concomitant]
     Indication: DIABETES MELLITUS
     Dosage: 500 MG, UNK
     Route: 048
     Dates: start: 20080904, end: 20090303
  8. CEPHADOL [Concomitant]
     Indication: DIABETES MELLITUS
     Dosage: 75 MG, UNK
     Route: 048
     Dates: start: 20080904, end: 20090303
  9. RED BLOOD CELLS [Concomitant]
     Dosage: 2 U, QW
     Dates: start: 20080904, end: 20090304

REACTIONS (5)
  - BLOOD CREATININE INCREASED [None]
  - BLOOD UREA INCREASED [None]
  - DIARRHOEA [None]
  - RENAL IMPAIRMENT [None]
  - STOMATITIS [None]
